FAERS Safety Report 20358353 (Version 1)
Quarter: 2022Q1

REPORT INFORMATION
  Report Type: Spontaneous
  Country: US (occurrence: US)
  Receive Date: 20220120
  Receipt Date: 20220120
  Transmission Date: 20220423
  Serious: No
  Sender: FDA-Public Use
  Company Number: US-NOVOPROD-874769

PATIENT
  Age: 46 Year
  Sex: Female
  Weight: 90.703 kg

DRUGS (1)
  1. OZEMPIC [Suspect]
     Active Substance: SEMAGLUTIDE
     Indication: Product used for unknown indication
     Dosage: UNK
     Route: 058

REACTIONS (3)
  - Hypertension [Unknown]
  - Blood triglycerides increased [Unknown]
  - Product use in unapproved indication [Unknown]
